FAERS Safety Report 8909541 (Version 1)
Quarter: 2012Q4

REPORT INFORMATION
  Report Type: 
  Country: FR (occurrence: FR)
  Receive Date: 20121114
  Receipt Date: 20121114
  Transmission Date: 20130627
  Serious: Yes (Hospitalization)
  Sender: FDA-Public Use
  Company Number: FR-ALLERGAN-1215744US

PATIENT
  Age: 93 Year
  Sex: Male

DRUGS (7)
  1. TROSPIUM CHLORIDE [Suspect]
     Indication: DRUG USE FOR UNKNOWN INDICATION
     Dosage: 40 mg, qd
     Route: 048
     Dates: end: 20120702
  2. MOTILIUM [Suspect]
     Indication: DRUG USE FOR UNKNOWN INDICATION
     Dosage: 3 DF, qd
     Route: 048
     Dates: end: 20120702
  3. ATACAND [Concomitant]
     Dosage: 8 mg, UNK
  4. LANSOPRAZOLE [Concomitant]
  5. FORLAX [Concomitant]
  6. LASILIX [Concomitant]
     Indication: DRUG USE FOR UNKNOWN INDICATION
  7. AERIUS [Concomitant]
     Indication: DRUG USE FOR UNKNOWN INDICATION

REACTIONS (3)
  - Diarrhoea [Recovered/Resolved]
  - Headache [Recovered/Resolved]
  - Nausea [Recovered/Resolved]
